FAERS Safety Report 4326056-2 (Version None)
Quarter: 2004Q1

REPORT INFORMATION
  Report Type: 
  Country: None (occurrence: None)
  Receive Date: 20040323
  Receipt Date: 20040311
  Transmission Date: 20041129
  Serious: Yes (Hospitalization)
  Sender: FDA-Public Use
  Company Number: DSA-70216-2004

PATIENT
  Age: 39 Year
  Sex: Female
  Weight: 56.6996 kg

DRUGS (8)
  1. DARVOCET-N 100 [Suspect]
     Indication: BACK PAIN
     Dosage: 100 TAB ONCE PO
     Route: 048
     Dates: start: 19950101
  2. DARVOCET-N 100 [Suspect]
     Indication: BACK PAIN
     Dosage: 2 TAB TID PO
     Route: 048
  3. ROBAXIN [Suspect]
     Indication: MUSCLE SPASMS
     Dosage: 100 TAB ONCE PO
     Route: 048
     Dates: start: 19950101
  4. ROBAXIN [Suspect]
     Indication: MUSCLE SPASMS
     Dosage: 2 TAB TID PO
     Route: 048
     Dates: start: 19910101
  5. PROZAC [Suspect]
     Indication: ANXIETY
     Dosage: 20 MG DAILY PO
     Route: 048
     Dates: start: 19950101, end: 20040101
  6. PROZAC [Suspect]
     Indication: DEPRESSION
     Dosage: 20 MG DAILY PO
     Route: 048
     Dates: start: 19950101, end: 20040101
  7. PROZAC [Suspect]
     Indication: ANXIETY
     Dosage: 40 MG DAILY PO
     Route: 048
     Dates: start: 20040101
  8. PROZAC [Suspect]
     Indication: DEPRESSION
     Dosage: 40 MG DAILY PO
     Route: 048
     Dates: start: 20040101

REACTIONS (5)
  - FUNGAL INFECTION [None]
  - HEPATOCELLULAR DAMAGE [None]
  - INTENTIONAL OVERDOSE [None]
  - MENTAL DISORDER [None]
  - TREATMENT NONCOMPLIANCE [None]
